FAERS Safety Report 20846011 (Version 1)
Quarter: 2022Q2

REPORT INFORMATION
  Report Type: Spontaneous
  Country: US (occurrence: US)
  Receive Date: 20220518
  Receipt Date: 20220518
  Transmission Date: 20220721
  Serious: No
  Sender: FDA-Public Use
  Company Number: US-PFIZER INC-202200080710

PATIENT
  Age: 74 Year
  Sex: Female
  Weight: 56.7 kg

DRUGS (6)
  1. LATANOPROST [Suspect]
     Active Substance: LATANOPROST
     Indication: Glaucoma
     Dosage: UNK
     Dates: start: 202107
  2. LATANOPROST [Suspect]
     Active Substance: LATANOPROST
     Dosage: UNK (1 DROP IN THE RIGHT EYE AT BEDTIME)
     Dates: start: 20210715
  3. TIMOLOL [Suspect]
     Active Substance: TIMOLOL
     Dosage: UNK (1 DROP IN THE RIGHT EYES TWICE A DAY)
  4. MOXIFLOXACIN [Suspect]
     Active Substance: MOXIFLOXACIN
     Dosage: UNK (4 DROPS A DAY FOR 2 WEEKS)
     Dates: start: 20211201
  5. MOXIFLOXACIN [Suspect]
     Active Substance: MOXIFLOXACIN
     Dosage: UNK (2 DROPS A DAY FOR 2 WEEKS)
     Dates: start: 20211201
  6. BRIMONIDINE [Suspect]
     Active Substance: BRIMONIDINE TARTRATE
     Dosage: UNK

REACTIONS (10)
  - Erythema of eyelid [Unknown]
  - Swelling of eyelid [Unknown]
  - Ocular hyperaemia [Unknown]
  - Conjunctivitis [Unknown]
  - Dry eye [Unknown]
  - Eye discharge [Unknown]
  - Lacrimation increased [Unknown]
  - Eye disorder [Unknown]
  - Drug hypersensitivity [Unknown]
  - Iritis [Unknown]

NARRATIVE: CASE EVENT DATE: 20211101
